FAERS Safety Report 7493779-6 (Version None)
Quarter: 2011Q2

REPORT INFORMATION
  Report Type: 
  Country: None (occurrence: None)
  Receive Date: 20110520
  Receipt Date: 20110221
  Transmission Date: 20111010
  Serious: No
  Sender: FDA-Public Use
  Company Number: US-ASTRAZENECA-2011SE09799

PATIENT
  Age: 74 Year
  Sex: Female
  Weight: 73.5 kg

DRUGS (1)
  1. VIMOVO [Suspect]
     Indication: RHEUMATOID ARTHRITIS
     Dosage: 500 MG / 20 MG ONE HALF TABLET IN AM AND ONE HALF TABLET IN PM
     Route: 048

REACTIONS (3)
  - PRURITUS [None]
  - PARAESTHESIA [None]
  - WRONG TECHNIQUE IN DRUG USAGE PROCESS [None]
